FAERS Safety Report 9785467 (Version 1)
Quarter: 2013Q4

REPORT INFORMATION
  Report Type: Spontaneous
  Country: DZ (occurrence: None)
  Receive Date: 20131224
  Receipt Date: 20131224
  Transmission Date: 20140711
  Serious: Yes (Other)
  Sender: FDA-Public Use
  Company Number: VAL_02873_2013

PATIENT
  Age: 27 Year
  Sex: Female

DRUGS (2)
  1. BROMOCRIPTINE [Suspect]
     Indication: PROLACTINOMA
     Dosage: (DF)
  2. CABERGOLINE [Suspect]
     Indication: PROLACTINOMA
     Dosage: (DF)

REACTIONS (7)
  - Blood prolactin increased [None]
  - Visual acuity reduced [None]
  - Refusal of treatment by patient [None]
  - Prolactinoma [None]
  - Condition aggravated [None]
  - Cerebrovascular accident [None]
  - Drug ineffective [None]
